FAERS Safety Report 4815946-X (Version None)
Quarter: 2005Q4

REPORT INFORMATION
  Report Type: 
  Country: None (occurrence: None)
  Receive Date: 20051031
  Receipt Date: 20051014
  Transmission Date: 20060501
  Serious: Yes (Life-Threatening)
  Sender: FDA-Public Use
  Company Number: DE-ABBOTT-05P-062-0313996-00

PATIENT
  Sex: Male

DRUGS (9)
  1. CIPRALEX FILM-COATED TABLETS [Suspect]
     Indication: DEPRESSED MOOD
     Route: 048
     Dates: start: 20050804
  2. LYRICA [Concomitant]
     Indication: DYSAESTHESIA
     Route: 048
     Dates: start: 20050920
  3. LYRICA [Concomitant]
     Indication: PAIN
  4. VALORON N [Concomitant]
     Indication: DRUG USE FOR UNKNOWN INDICATION
     Route: 048
     Dates: start: 20050912
  5. VOLTAREN [Concomitant]
     Indication: OSTEOARTHRITIS
     Route: 048
     Dates: start: 20051003
  6. ESOMEPRAZOLE [Concomitant]
     Indication: PROPHYLAXIS AGAINST GASTROINTESTINAL ULCER
     Route: 048
     Dates: start: 20050701
  7. POTASSIUM CHLORIDE [Concomitant]
     Indication: BLOOD POTASSIUM DECREASED
     Dates: start: 20050926
  8. METOCLOPRAMIDE [Concomitant]
     Indication: VOMITING
  9. HEPARIN-FRACTION, SODIUM SALT [Concomitant]
     Indication: THROMBOSIS

REACTIONS (3)
  - CARDIAC ARREST [None]
  - CIRCULATORY COLLAPSE [None]
  - MYDRIASIS [None]
